FAERS Safety Report 8648480 (Version 7)
Quarter: 2013Q1

REPORT INFORMATION
  Report Type: Report from Study
  Country: US (occurrence: US)
  Receive Date: 20120703
  Receipt Date: 20130107
  Transmission Date: 20140127
  Serious: Yes (Hospitalization)
  Sender: FDA-Public Use
  Company Number: US-ABBOTT-12P-163-0949861-00

PATIENT
  Age: 69 None
  Sex: Male
  Weight: 79.9 kg

DRUGS (30)
  1. HUMIRA [Suspect]
     Indication: CROHN^S DISEASE
     Dosage: 160MG LOADING DOSE
     Dates: start: 20120612
  2. HUMIRA [Suspect]
  3. TRILIPIX [Concomitant]
     Indication: BLOOD CHOLESTEROL INCREASED
  4. ZETIA [Concomitant]
     Indication: BLOOD CHOLESTEROL INCREASED
  5. LIPITOR [Concomitant]
     Indication: BLOOD CHOLESTEROL INCREASED
  6. BYSTOLIC [Concomitant]
     Indication: HYPERTENSION
  7. ASPIRIN [Concomitant]
     Indication: CARDIAC DISORDER
  8. ASPIRIN [Concomitant]
     Indication: PROPHYLAXIS
  9. CLONIDINE [Concomitant]
     Indication: HYPERTENSION
  10. XANAX [Concomitant]
     Indication: INSOMNIA
  11. XANAX [Concomitant]
  12. FIORICET [Concomitant]
     Indication: HEADACHE
  13. NORCO [Concomitant]
     Indication: PANCREATITIS
     Dosage: 10/325MG 2 TABLETS Q4H PRN
  14. NORCO [Concomitant]
     Indication: ABDOMINAL PAIN
  15. NORCO [Concomitant]
     Indication: PAIN
  16. IMURAN [Concomitant]
     Indication: CROHN^S DISEASE
     Dosage: DAILY
  17. IMURAN [Concomitant]
  18. IMURAN [Concomitant]
  19. SYNTHROID [Concomitant]
     Indication: HYPOTHYROIDISM
  20. VICODIN ES [Concomitant]
     Indication: PRODUCT USED FOR UNKNOWN INDICATION
  21. MIRALAX [Concomitant]
     Indication: PRODUCT USED FOR UNKNOWN INDICATION
     Dosage: 1 SCOOP MOST DAYS
  22. ZOFRAN [Concomitant]
     Indication: GASTROOESOPHAGEAL REFLUX DISEASE
     Dosage: PRN
  23. ZOFRAN [Concomitant]
     Indication: NAUSEA
  24. PLAVIX [Concomitant]
     Indication: PRODUCT USED FOR UNKNOWN INDICATION
  25. PROVIGIL [Concomitant]
     Indication: PRODUCT USED FOR UNKNOWN INDICATION
  26. NITROSTAT [Concomitant]
     Indication: PRODUCT USED FOR UNKNOWN INDICATION
  27. LANSOPRAZOLE [Concomitant]
     Indication: PRODUCT USED FOR UNKNOWN INDICATION
     Dosage: DAILY
  28. AZULFIDINE [Concomitant]
     Indication: PRODUCT USED FOR UNKNOWN INDICATION
     Dosage: ONLY TAKING 2 G DAILY AT MOST
  29. CARVEDILOL [Concomitant]
     Indication: PRODUCT USED FOR UNKNOWN INDICATION
  30. CPAP [Concomitant]
     Indication: SLEEP APNOEA SYNDROME

REACTIONS (28)
  - Nuclear magnetic resonance imaging abnormal [Recovering/Resolving]
  - Pancreatic duct obstruction [Recovering/Resolving]
  - Amylase increased [Unknown]
  - Asthenia [Unknown]
  - Hypophagia [Unknown]
  - Food intolerance [Unknown]
  - Abdominal discomfort [Unknown]
  - Lipase increased [Unknown]
  - Abdominal pain upper [Not Recovered/Not Resolved]
  - Abdominal pain [Not Recovered/Not Resolved]
  - Insomnia [Recovering/Resolving]
  - Fatigue [Not Recovered/Not Resolved]
  - Decreased appetite [Recovered/Resolved]
  - Weight decreased [Recovered/Resolved]
  - Weight increased [Not Recovered/Not Resolved]
  - Asthenia [Not Recovered/Not Resolved]
  - Sinusitis [Not Recovered/Not Resolved]
  - Fatigue [Recovering/Resolving]
  - Increased appetite [Unknown]
  - Asthenia [Recovering/Resolving]
  - Weight increased [Unknown]
  - Decreased activity [Unknown]
  - Dyspepsia [Unknown]
  - Decreased interest [Unknown]
  - Bone pain [Unknown]
  - Arthralgia [Unknown]
  - Arthritis [Unknown]
  - Gastrooesophageal reflux disease [Unknown]
